FAERS Safety Report 7820175 (Version 10)
Quarter: 2015Q4

REPORT INFORMATION
  Report Type: Spontaneous
  Country: US (occurrence: US)
  Receive Date: 20110221
  Receipt Date: 20151218
  Transmission Date: 20160305
  Serious: Yes (Hospitalization, Other)
  Sender: FDA-Public Use
  Company Number: US-ROCHE-734015

PATIENT
  Age: 39 Year
  Sex: Male
  Weight: 72.6 kg

DRUGS (1)
  1. ACCUTANE [Suspect]
     Active Substance: ISOTRETINOIN
     Indication: ACNE CYSTIC
     Route: 065
     Dates: start: 19820601, end: 19861231

REACTIONS (11)
  - Colitis ulcerative [Unknown]
  - Periumbilical abscess [Unknown]
  - Small intestinal obstruction [Unknown]
  - Depression [Unknown]
  - Irritable bowel syndrome [Unknown]
  - Gastrointestinal injury [Unknown]
  - Perirectal abscess [Unknown]
  - Crohn^s disease [Unknown]
  - Inflammatory bowel disease [Unknown]
  - Suicidal ideation [Unknown]
  - Anal fistula [Unknown]

NARRATIVE: CASE EVENT DATE: 1985
